FAERS Safety Report 22539978 (Version 1)
Quarter: 2023Q2

REPORT INFORMATION
  Report Type: Spontaneous
  Country: FR (occurrence: FR)
  Receive Date: 20230609
  Receipt Date: 20230609
  Transmission Date: 20230722
  Serious: Yes (Death)
  Sender: FDA-Public Use
  Company Number: FR-AFSSAPS-NC2023000642

PATIENT
  Age: 63 Year
  Sex: Female
  Weight: 40 kg

DRUGS (3)
  1. CYCLOPHOSPHAMIDE [Suspect]
     Active Substance: CYCLOPHOSPHAMIDE
     Indication: Thrombotic microangiopathy
     Dosage: 500 MG, QD
     Route: 065
     Dates: start: 20230316, end: 20230324
  2. SOLIRIS [Suspect]
     Active Substance: ECULIZUMAB
     Indication: Thrombotic microangiopathy
     Dosage: 600 MG, SINGLE
     Route: 065
     Dates: start: 20230313, end: 20230313
  3. SOLIRIS [Suspect]
     Active Substance: ECULIZUMAB
     Indication: Off label use
     Dosage: 900 MG, SINGLE
     Route: 065
     Dates: start: 20230321, end: 20230321

REACTIONS (2)
  - Stress cardiomyopathy [Fatal]
  - Off label use [Unknown]

NARRATIVE: CASE EVENT DATE: 20230324
